FAERS Safety Report 8483179-4 (Version None)
Quarter: 2012Q3

REPORT INFORMATION
  Report Type: 
  Country: None (occurrence: None)
  Receive Date: 20120702
  Receipt Date: 20120626
  Transmission Date: 20120928
  Serious: Yes (Death)
  Sender: FDA-Public Use
  Company Number: AT-PFIZER INC-2012140825

PATIENT
  Age: 55 Year
  Sex: Male
  Weight: 77 kg

DRUGS (9)
  1. ETOPOSIDE [Suspect]
     Indication: ACUTE MYELOID LEUKAEMIA
     Dosage: 190 MG, 1X/DAY
     Dates: start: 20120530, end: 20120601
  2. ATRACURIUM BESYLATE [Suspect]
     Dosage: 30 MG, 1X/DAY
     Dates: start: 20120607
  3. MEROPENEM [Concomitant]
     Indication: INFECTION
     Dosage: 3 G, UNK
     Route: 042
     Dates: start: 20120525, end: 20120608
  4. ALLOPURINOL [Concomitant]
     Indication: BLOOD URIC ACID
     Dosage: 300 MG, UNK
     Route: 048
     Dates: start: 20120530, end: 20120606
  5. VFEND [Concomitant]
     Indication: PROPHYLAXIS
     Dosage: 400 MG, UNK
     Route: 048
     Dates: start: 20120525
  6. IDARUBICIN HCL [Suspect]
     Indication: ACUTE MYELOID LEUKAEMIA
     Dosage: 23 MG, 1X/DAY
     Dates: start: 20120530, end: 20120603
  7. CYTARABINE [Suspect]
     Indication: ACUTE MYELOID LEUKAEMIA
     Dosage: 194 MG, 1X/DAY
     Dates: start: 20120530, end: 20120605
  8. ATRACURIUM BESYLATE [Suspect]
     Indication: ACUTE MYELOID LEUKAEMIA
     Dosage: 90 MG, 1X/DAY
     Dates: start: 20120604, end: 20120606
  9. PANTOPRAZOLE [Concomitant]
     Indication: PROPHYLAXIS AGAINST GASTROINTESTINAL ULCER
     Dosage: 40 MG, UNK
     Route: 048
     Dates: start: 20120530

REACTIONS (2)
  - PNEUMONIA [None]
  - COLITIS [None]
